FAERS Safety Report 11731411 (Version 1)
Quarter: 2015Q4

REPORT INFORMATION
  Report Type: Spontaneous
  Country: US (occurrence: US)
  Receive Date: 20151110
  Receipt Date: 20151110
  Transmission Date: 20160304
  Serious: No
  Sender: FDA-Public Use
  Company Number: US-ELI_LILLY_AND_COMPANY-US201203003315

PATIENT
  Age: 87 Year
  Sex: Male

DRUGS (1)
  1. FORTEO [Suspect]
     Active Substance: TERIPARATIDE
     Dosage: UNK, UNKNOWN
     Dates: start: 201202

REACTIONS (6)
  - Nausea [Unknown]
  - Intentional product misuse [Unknown]
  - Rhinitis [Unknown]
  - Discomfort [Unknown]
  - Cough [Unknown]
  - Neck pain [Unknown]

NARRATIVE: CASE EVENT DATE: 201202
